FAERS Safety Report 18294521 (Version 1)
Quarter: 2020Q3

REPORT INFORMATION
  Report Type: Spontaneous
  Country: IT (occurrence: IT)
  Receive Date: 20200922
  Receipt Date: 20200922
  Transmission Date: 20201103
  Serious: Yes (Hospitalization, Other)
  Sender: FDA-Public Use
  Company Number: IT-JNJFOC-20200916879

PATIENT
  Age: 93 Year
  Sex: Male

DRUGS (8)
  1. CALCIUM FOLINATE [Suspect]
     Active Substance: LEUCOVORIN CALCIUM
     Indication: PRODUCT USED FOR UNKNOWN INDICATION
     Dosage: 45 MG, TOTAL; IN TOTAL
     Route: 065
     Dates: start: 20200707, end: 20200707
  2. LYRINEL [Suspect]
     Active Substance: OXYBUTYNIN
     Indication: PRODUCT USED FOR UNKNOWN INDICATION
     Dosage: 45 MG, TOTAL; IN TOTAL
     Route: 048
     Dates: start: 20200707, end: 20200707
  3. LASIX [Suspect]
     Active Substance: FUROSEMIDE
     Indication: PRODUCT USED FOR UNKNOWN INDICATION
     Dosage: 50 MG, TOTAL; IN TOTAL
     Route: 065
     Dates: start: 20200707, end: 20200707
  4. LEVOPRAID                          /00314301/ [Suspect]
     Active Substance: SULPIRIDE
     Indication: PRODUCT USED FOR UNKNOWN INDICATION
     Dosage: 50 MG, TOTAL; IN TOTAL
     Route: 065
     Dates: start: 20200707, end: 20200707
  5. RIVAROXABAN [Suspect]
     Active Substance: RIVAROXABAN
     Indication: PRODUCT USED FOR UNKNOWN INDICATION
     Dosage: 45 MG, TOTAL; IN TOTAL
     Route: 065
     Dates: start: 20200707, end: 20200707
  6. PANTOPRAZOLE [Suspect]
     Active Substance: PANTOPRAZOLE
     Indication: PRODUCT USED FOR UNKNOWN INDICATION
     Dosage: 2 DF, TOTAL; IN TOTAL
     Route: 065
     Dates: start: 20200707, end: 20200707
  7. DUTASTERIDE. [Suspect]
     Active Substance: DUTASTERIDE
     Indication: PRODUCT USED FOR UNKNOWN INDICATION
     Dosage: 7.5 MG, TOTAL; IN TOTAL
     Route: 065
     Dates: start: 20200707, end: 20200707
  8. MITTOVAL [Suspect]
     Active Substance: ALFUZOSIN HYDROCHLORIDE
     Indication: PRODUCT USED FOR UNKNOWN INDICATION
     Dosage: 60 MG, TOTAL; IN TOTAL
     Route: 048
     Dates: start: 20200707, end: 20200707

REACTIONS (3)
  - Disorganised speech [Not Recovered/Not Resolved]
  - Overdose [Unknown]
  - Drug abuse [Unknown]

NARRATIVE: CASE EVENT DATE: 20200707
